FAERS Safety Report 15169057 (Version 1)
Quarter: 2018Q3

REPORT INFORMATION
  Report Type: Spontaneous
  Country: US (occurrence: US)
  Receive Date: 20180720
  Receipt Date: 20180720
  Transmission Date: 20181010
  Serious: Yes (Hospitalization)
  Sender: FDA-Public Use
  Company Number: US-TEVA-2018-US-927907

PATIENT
  Sex: Male

DRUGS (1)
  1. OXALIPLATIN. [Suspect]
     Active Substance: OXALIPLATIN
     Indication: COLORECTAL CANCER
     Dosage: DOSE STRENGTH:  5 MG/ML, 50 MG
     Dates: end: 20180711

REACTIONS (8)
  - Flushing [Unknown]
  - Platelet count decreased [Unknown]
  - Hot flush [Unknown]
  - Pyrexia [Unknown]
  - Nausea [Unknown]
  - White blood cell count increased [Unknown]
  - Vomiting [Unknown]
  - Skin warm [Unknown]

NARRATIVE: CASE EVENT DATE: 20180710
